FAERS Safety Report 20574436 (Version 1)
Quarter: 2022Q1

REPORT INFORMATION
  Report Type: Spontaneous
  Country: US (occurrence: US)
  Receive Date: 20220309
  Receipt Date: 20220309
  Transmission Date: 20220423
  Serious: Yes (Other)
  Sender: FDA-Public Use
  Company Number: US-SIGMAPHARM LABORATORIES, LLC-2022SIG00012

PATIENT
  Sex: Female
  Weight: 56.236 kg

DRUGS (7)
  1. ACITRETIN [Suspect]
     Active Substance: ACITRETIN
     Indication: Squamous cell carcinoma of skin
     Dosage: 10 MG, 3X/WEEK (MONDAY, WEDNESDAY AND FRIDAY)
     Route: 048
  2. VITAMIN D3 [Concomitant]
     Active Substance: CHOLECALCIFEROL
     Dosage: UNK, 1X/DAY
  3. VITAMIN B12 [Concomitant]
     Active Substance: CYANOCOBALAMIN
     Dosage: UNK, 1X/DAY
  4. BUPROPION [Concomitant]
     Active Substance: BUPROPION
     Dosage: 150 MG, 1X/DAY
     Route: 048
  5. ASPIRIN [Concomitant]
     Active Substance: ASPIRIN
     Dosage: 81 MG, 1X/DAY
  6. ROSUVASTATIN [Concomitant]
     Active Substance: ROSUVASTATIN
     Dosage: 10 MG, 1X/DAY
  7. ESCITALOPRAM [Concomitant]
     Active Substance: ESCITALOPRAM OXALATE
     Dosage: 10 MG, 1X/DAY IN THE EVENING

REACTIONS (2)
  - Skin squamous cell carcinoma recurrent [Unknown]
  - Off label use [Not Recovered/Not Resolved]
